FAERS Safety Report 8487490-2 (Version None)
Quarter: 2012Q3

REPORT INFORMATION
  Report Type: 
  Country: None (occurrence: None)
  Receive Date: 20120705
  Receipt Date: 20120629
  Transmission Date: 20120928
  Serious: Yes (Hospitalization)
  Sender: FDA-Public Use
  Company Number: JP-SANOFI-AVENTIS-2012SA043464

PATIENT
  Age: 78 Year
  Sex: Female
  Weight: 63 kg

DRUGS (5)
  1. NIFEDIPINE [Concomitant]
  2. ENALAPRIL MALEATE [Concomitant]
  3. BISOPROLOL FUMARATE [Concomitant]
  4. LASIX [Suspect]
     Route: 065
  5. ASPIRIN [Concomitant]

REACTIONS (8)
  - INTESTINAL HAEMORRHAGE [None]
  - ABDOMINAL PAIN UPPER [None]
  - BLOOD LACTIC ACID INCREASED [None]
  - BLOOD PH DECREASED [None]
  - METABOLIC ACIDOSIS [None]
  - INTESTINAL ISCHAEMIA [None]
  - BLOOD BICARBONATE DECREASED [None]
  - MUCOSAL ATROPHY [None]
